FAERS Safety Report 13883965 (Version 1)
Quarter: 2017Q3

REPORT INFORMATION
  Report Type: Report from Study
  Country: DE (occurrence: DE)
  Receive Date: 20170820
  Receipt Date: 20170820
  Transmission Date: 20171127
  Serious: Yes (Death, Hospitalization, Other)
  Sender: FDA-Public Use
  Company Number: PHHY2017DE106432

PATIENT
  Age: 55 Year
  Sex: Male

DRUGS (5)
  1. BORTEZOMIB [Suspect]
     Active Substance: BORTEZOMIB
     Indication: PLASMA CELL MYELOMA
     Dosage: UNK
     Route: 065
  2. DARATUMUMAB [Concomitant]
     Active Substance: DARATUMUMAB
     Indication: MALIGNANT NEOPLASM PROGRESSION
     Dosage: 46 MG, QD
     Route: 065
     Dates: start: 20170712
  3. DARATUMUMAB [Concomitant]
     Active Substance: DARATUMUMAB
     Indication: PLASMA CELL MYELOMA
  4. DEXAMETHASONE. [Suspect]
     Active Substance: DEXAMETHASONE
     Indication: PLASMA CELL MYELOMA
     Dosage: UNK
     Route: 065
  5. FARYDAK [Suspect]
     Active Substance: PANOBINOSTAT
     Indication: PLASMA CELL MYELOMA
     Dosage: 10 MG, QD, ONCE WEEKLY, 2 WEEKS ON, 1 WEEK OFF
     Route: 048
     Dates: start: 20170228, end: 20170624

REACTIONS (18)
  - Heart rate increased [Fatal]
  - Lymphadenopathy [Fatal]
  - Rib fracture [Unknown]
  - Oedema [Unknown]
  - Coronary artery disease [Fatal]
  - Splenomegaly [Unknown]
  - Septic shock [Fatal]
  - Hyperaemia [Unknown]
  - Infusion related reaction [Recovered/Resolved]
  - Hepatic lesion [Unknown]
  - Pleural effusion [Unknown]
  - Pancytopenia [Fatal]
  - Ascites [Unknown]
  - Pyrexia [Fatal]
  - Immunosuppression [Fatal]
  - Pulmonary oedema [Unknown]
  - Plasma cell myeloma [Fatal]
  - Malignant neoplasm progression [Fatal]

NARRATIVE: CASE EVENT DATE: 20170624
